FAERS Safety Report 26203299 (Version 1)
Quarter: 2025Q4

REPORT INFORMATION
  Report Type: Spontaneous
  Country: CN (occurrence: CN)
  Receive Date: 20251226
  Receipt Date: 20251226
  Transmission Date: 20260118
  Serious: Yes (Hospitalization)
  Sender: BAYER HEALTHCARE PHARMACEUTICALS INC.
  Company Number: CN-BAYER-2025A168939

PATIENT
  Age: 75 Year
  Sex: Female
  Weight: 52 kg

DRUGS (10)
  1. AVELOX [Suspect]
     Active Substance: MOXIFLOXACIN HYDROCHLORIDE
     Indication: Pneumonia streptococcal
     Dosage: 0.4 G, QD
     Route: 041
     Dates: start: 20251205, end: 20251206
  2. AVELOX [Suspect]
     Active Substance: MOXIFLOXACIN HYDROCHLORIDE
     Indication: Pneumonia chlamydial
  3. PIPERACILLIN AND TAZOBACTAM [Suspect]
     Active Substance: PIPERACILLIN SODIUM\TAZOBACTAM SODIUM
     Indication: Pneumonia
     Dosage: 4.5 G, TID
     Route: 041
     Dates: start: 20251207, end: 20251208
  4. SODIUM CHLORIDE [Concomitant]
     Active Substance: SODIUM CHLORIDE
     Indication: Vehicle solution use
     Dosage: 100 ML, TID
     Route: 041
     Dates: start: 20251207, end: 20251208
  5. RANITIDINE [Concomitant]
     Active Substance: RANITIDINE
     Indication: Antacid therapy
     Dosage: 50 MG, QD
     Route: 041
     Dates: start: 20251201, end: 20251209
  6. RANITIDINE [Concomitant]
     Active Substance: RANITIDINE
     Indication: Gastrointestinal disorder prophylaxis
  7. DIETARY SUPPLEMENT [Concomitant]
     Active Substance: DIETARY SUPPLEMENT
     Indication: Abdominal distension
     Dosage: 1 DF, TID
     Route: 048
     Dates: start: 20251203
  8. DIETARY SUPPLEMENT [Concomitant]
     Active Substance: DIETARY SUPPLEMENT
     Indication: Dyspepsia
  9. MOSAPRIDE [Concomitant]
     Active Substance: MOSAPRIDE
     Indication: Abdominal distension
     Dosage: 5 MG, TID
     Route: 048
     Dates: start: 20251203
  10. MOSAPRIDE [Concomitant]
     Active Substance: MOSAPRIDE
     Indication: Dyspepsia

REACTIONS (11)
  - Nausea [Recovering/Resolving]
  - Retching [None]
  - Vomiting [Recovered/Resolved]
  - Gastrooesophageal reflux disease [Recovering/Resolving]
  - Abdominal distension [Recovering/Resolving]
  - Dyspepsia [None]
  - Decreased appetite [None]
  - Abdominal discomfort [Recovering/Resolving]
  - Abdominal pain [Recovered/Resolved]
  - Faeces discoloured [None]
  - Diarrhoea [None]

NARRATIVE: CASE EVENT DATE: 20251206
